FAERS Safety Report 5798666-7 (Version None)
Quarter: 2008Q3

REPORT INFORMATION
  Report Type: 
  Country: None (occurrence: None)
  Receive Date: 20080702
  Receipt Date: 20080624
  Transmission Date: 20090109
  Serious: Yes (Hospitalization)
  Sender: FDA-Public Use
  Company Number: US-AVENTIS-200812711US

PATIENT
  Sex: Male
  Weight: 88 kg

DRUGS (8)
  1. TAXOTERE [Suspect]
     Indication: PROSTATE CANCER
     Route: 042
     Dates: start: 20080130, end: 20080130
  2. ASPIRIN [Concomitant]
  3. ENALAPRIL MALEATE [Concomitant]
  4. NORVASC [Concomitant]
  5. SOTALOL HCL [Concomitant]
     Indication: EMPHYSEMA
  6. ADVAIR DISKUS 100/50 [Concomitant]
     Indication: EMPHYSEMA
     Dosage: DOSE: 250/50
  7. SPIRIVA [Concomitant]
     Dosage: DOSE: UNK
  8. OXYGEN [Concomitant]
     Indication: EMPHYSEMA
     Dosage: DOSE: 2 L

REACTIONS (9)
  - BLOOD PRESSURE SYSTOLIC DECREASED [None]
  - BRONCHOSPASM [None]
  - CHEST DISCOMFORT [None]
  - HEART RATE DECREASED [None]
  - HYPERHIDROSIS [None]
  - LOSS OF CONSCIOUSNESS [None]
  - MYDRIASIS [None]
  - PRURITUS [None]
  - RASH [None]
